FAERS Safety Report 23966564 (Version 2)
Quarter: 2024Q3

REPORT INFORMATION
  Report Type: Spontaneous
  Country: JP (occurrence: JP)
  Receive Date: 20240612
  Receipt Date: 20240828
  Transmission Date: 20241017
  Serious: Yes (Other)
  Sender: AMGEN
  Company Number: JP-AMGEN-JPNSP2024100102

PATIENT
  Sex: Female

DRUGS (2)
  1. BLINCYTO [Suspect]
     Active Substance: BLINATUMOMAB
     Indication: B precursor type acute leukaemia
     Dosage: 9 MICROGRAM, QD, DRIP INFUSION
     Route: 042
     Dates: start: 20240514, end: 202405
  2. BLINCYTO [Suspect]
     Active Substance: BLINATUMOMAB
     Dosage: 28 MICROGRAM, QD DRIP INFUSION DOSE INCREASED ON DAY 8
     Route: 042
     Dates: start: 20240522, end: 20240610

REACTIONS (3)
  - Cytokine release syndrome [Recovered/Resolved]
  - Acute lymphocytic leukaemia recurrent [Unknown]
  - Fibrin degradation products increased [Recovered/Resolved]

NARRATIVE: CASE EVENT DATE: 20240501
